FAERS Safety Report 16010169 (Version 1)
Quarter: 2019Q1

REPORT INFORMATION
  Report Type: Report from Study
  Country: None (occurrence: BR)
  Receive Date: 20190227
  Receipt Date: 20190227
  Transmission Date: 20190418
  Serious: Yes (Other)
  Sender: FDA-Public Use
  Company Number: BR-ABBVIE-19K-020-2676442-00

PATIENT
  Sex: Female
  Weight: 69 kg

DRUGS (1)
  1. HUMIRA [Suspect]
     Active Substance: ADALIMUMAB
     Indication: ANKYLOSING SPONDYLITIS
     Route: 058
     Dates: end: 20181015

REACTIONS (15)
  - Malaise [Unknown]
  - Haemorrhoids [Unknown]
  - Musculoskeletal pain [Not Recovered/Not Resolved]
  - Impaired healing [Recovered/Resolved]
  - Cholelithiasis [Recovered/Resolved]
  - Body height decreased [Unknown]
  - Spinal disorder [Unknown]
  - Dengue fever [Recovered/Resolved]
  - Osteoarthritis [Not Recovered/Not Resolved]
  - Articular calcification [Not Recovered/Not Resolved]
  - Arthralgia [Not Recovered/Not Resolved]
  - Gastritis [Unknown]
  - Osteoarthritis [Unknown]
  - Abdominal pain [Unknown]
  - Pyrexia [Unknown]
